FAERS Safety Report 10034798 (Version 1)
Quarter: 2014Q1

REPORT INFORMATION
  Report Type: Spontaneous
  Country: US (occurrence: None)
  Receive Date: 20140306
  Receipt Date: 20140306
  Transmission Date: 20141002
  Serious: Yes (Disabling)
  Sender: FDA-Public Use
  Company Number: 163-21880-13032531

PATIENT
  Age: 65 Year
  Sex: Female

DRUGS (12)
  1. REVLIMID [Suspect]
     Indication: PLASMA CELL MYELOMA
     Dosage: 25 MG, 14 IN 21 D, PO
     Route: 048
     Dates: start: 20130205
  2. ACYCLOVIR [Concomitant]
  3. CADUET (CADUET) [Concomitant]
  4. DOCUSATE SODIUM (DOCUSATE SODIUM) [Concomitant]
  5. METFORMIN HCL [Concomitant]
  6. MORPHINE SULFATE [Concomitant]
  7. OXYCODONE HCL [Concomitant]
  8. PEG-3350 AND ELECTRO (COLYTE ^REED^ [Concomitant]
  9. TRIAMTERENE-HCTZ (DYAZIDE) [Concomitant]
  10. DEXAMETHASONE (DEXAMETHASONE) [Concomitant]
  11. FERROUS SULFATE (FERROUS SULFATE) [Concomitant]
  12. HCTZ (HYDROCHLOROTHIAZIDE) [Concomitant]

REACTIONS (2)
  - Muscular weakness [None]
  - Drug intolerance [None]
